FAERS Safety Report 19167920 (Version 6)
Quarter: 2021Q4

REPORT INFORMATION
  Report Type: Report from Study
  Country: ES (occurrence: ES)
  Receive Date: 20210422
  Receipt Date: 20211217
  Transmission Date: 20220304
  Serious: Yes (Other)
  Sender: FDA-Public Use
  Company Number: ES-ZAMBON-202100409ESP

PATIENT
  Age: 90 Year
  Sex: Female

DRUGS (5)
  1. DULOXETINE [Interacting]
     Active Substance: DULOXETINE
     Indication: Depression
     Dosage: 30 MILLIGRAM, ONCE A DAY
     Route: 065
  2. DULOXETINE [Interacting]
     Active Substance: DULOXETINE
     Indication: Parkinson^s disease
  3. DULOXETINE [Interacting]
     Active Substance: DULOXETINE
     Indication: Antidepressant therapy
  4. TRAMADOL [Suspect]
     Active Substance: TRAMADOL
     Indication: Product used for unknown indication
     Dosage: 37.5 MILLIGRAM, ONCE A DAY
     Route: 065
  5. SAFINAMIDE [Interacting]
     Active Substance: SAFINAMIDE
     Indication: Parkinson^s disease
     Dosage: 50 MILLIGRAM, ONCE A DAY
     Route: 065

REACTIONS (9)
  - Myoclonus [Recovering/Resolving]
  - Nervousness [Recovering/Resolving]
  - Confusional state [Recovering/Resolving]
  - Sleep disorder [Recovering/Resolving]
  - Serum serotonin increased [Recovering/Resolving]
  - Toxicity to various agents [Recovering/Resolving]
  - Serotonin syndrome [Recovered/Resolved]
  - Product use in unapproved indication [Unknown]
  - Labelled drug-drug interaction issue [Recovering/Resolving]
